FAERS Safety Report 16063950 (Version 1)
Quarter: 2019Q1

REPORT INFORMATION
  Report Type: Spontaneous
  Country: GB (occurrence: GB)
  Receive Date: 20190312
  Receipt Date: 20190312
  Transmission Date: 20190418
  Serious: Yes (Other)
  Sender: FDA-Public Use
  Company Number: GB-MYLANLABS-2019M1022181

PATIENT
  Age: 72 Year
  Sex: Female
  Weight: 63.4 kg

DRUGS (13)
  1. FEXOFENADINE [Concomitant]
     Active Substance: FEXOFENADINE\FEXOFENADINE HYDROCHLORIDE
     Dosage: 180 MILLIGRAM, QD
     Dates: start: 20181012
  2. NITROFURANTOIN. [Concomitant]
     Active Substance: NITROFURANTOIN
     Dosage: AT NIGHT
     Dates: start: 20181010, end: 20181010
  3. EPADERM [Concomitant]
     Active Substance: MINERAL OIL\PETROLATUM\WAX, EMULSIFYING
     Dosage: AS DIRECTED
     Dates: start: 20180823
  4. RANITIDINE. [Concomitant]
     Active Substance: RANITIDINE
     Dosage: 150 MILLIGRAM, QD
     Dates: start: 20181005
  5. CANESTEN [Concomitant]
     Active Substance: CLOTRIMAZOLE
     Dosage: USE AS DIRECTED
     Dates: start: 20180718
  6. BETAMETHASONE. [Concomitant]
     Active Substance: BETAMETHASONE
     Dosage: NOCTE
     Dates: start: 20181010, end: 20181010
  7. LANSOPRAZOLE. [Concomitant]
     Active Substance: LANSOPRAZOLE
     Dosage: 1 DOSAGE FORM, QD
     Dates: start: 20181010
  8. ROSUVASTATIN. [Concomitant]
     Active Substance: ROSUVASTATIN
     Dosage: 5 MILLIGRAM, QD
     Dates: start: 20180911
  9. BUSCOPAN [Concomitant]
     Active Substance: BUTYLSCOPOLAMINE BROMIDE
     Dosage: THREE TIMES DAILY
     Dates: start: 20180917
  10. BENDROFLUMETHIAZIDE [Concomitant]
     Active Substance: BENDROFLUMETHIAZIDE
     Dosage: EACH MORNING.
     Dates: start: 20180911
  11. LANSOPRAZOLE. [Suspect]
     Active Substance: LANSOPRAZOLE
     Indication: PRODUCT USED FOR UNKNOWN INDICATION
     Dosage: 30 MILLIGRAM, QD
     Route: 048
     Dates: start: 20181011, end: 20181012
  12. EVACAL D3 [Concomitant]
     Dosage: 1500MG/400UNIT
     Dates: start: 20180921
  13. ACIDEX                             /01521901/ [Concomitant]
     Active Substance: CALCIUM CARBONATE\SODIUM ALGINATE\SODIUM BICARBONATE
     Dosage: AFTER MEALS AND AT BEDTIME
     Dates: start: 20181010

REACTIONS (1)
  - Angioedema [Recovering/Resolving]

NARRATIVE: CASE EVENT DATE: 20181011
